FAERS Safety Report 14842321 (Version 3)
Quarter: 2018Q2

REPORT INFORMATION
  Report Type: Report from Study
  Country: JP (occurrence: JP)
  Receive Date: 20180503
  Receipt Date: 20180607
  Transmission Date: 20180711
  Serious: Yes (Hospitalization)
  Sender: FDA-Public Use
  Company Number: JP-009507513-1804JPN002821J

PATIENT
  Age: 73 Year
  Sex: Male
  Weight: 56 kg

DRUGS (11)
  1. PEMBROLIZUMAB. [Suspect]
     Active Substance: PEMBROLIZUMAB
     Indication: URETERIC CANCER
     Dosage: 200 MG, Q3W
     Route: 041
     Dates: start: 20180314, end: 20180404
  2. MAGNESIUM (UNSPECIFIED) [Concomitant]
     Active Substance: MAGNESIUM
     Dosage: 1980 MG, TID
     Route: 048
  3. TELTHIA COMBINATION DSEP [Concomitant]
     Dosage: UNK, QD
     Route: 048
  4. GLUCOBAY [Concomitant]
     Active Substance: ACARBOSE
     Dosage: 300 MG, TID
     Route: 048
  5. CAPTOPRIL. [Concomitant]
     Active Substance: CAPTOPRIL
     Dosage: 25 MG, QD
  6. DORNER [Concomitant]
     Active Substance: BERAPROST SODIUM
     Dosage: 120 MG, TID
     Route: 048
  7. SODIUM RABEPRAZOLE [Concomitant]
     Active Substance: RABEPRAZOLE SODIUM
     Dosage: 10 MG, QD
     Route: 048
  8. BERAPROST [Concomitant]
     Active Substance: BERAPROST
     Dosage: 120 MG, TID
     Route: 048
  9. OXYCODONE HYDROCHLORIDE. [Concomitant]
     Active Substance: OXYCODONE HYDROCHLORIDE
     Dosage: 30 MG, BID
     Route: 048
  10. FLUITRAN [Concomitant]
     Active Substance: TRICHLORMETHIAZIDE
     Dosage: 1 MG, QD
     Route: 048
  11. OXINORM [Concomitant]
     Dosage: 5 MG, UNK
     Route: 048

REACTIONS (1)
  - Glossitis [Recovered/Resolved]

NARRATIVE: CASE EVENT DATE: 20180411
